FAERS Safety Report 17661480 (Version 2)
Quarter: 2020Q2

REPORT INFORMATION
  Report Type: Spontaneous
  Country: US (occurrence: US)
  Receive Date: 20200413
  Receipt Date: 20200507
  Transmission Date: 20200713
  Serious: No
  Sender: FDA-Public Use
  Company Number: US-VERTEX PHARMACEUTICALS-2020-007799

PATIENT
  Sex: Female

DRUGS (9)
  1. PULMOZYME [Concomitant]
     Active Substance: DORNASE ALFA
     Dosage: 1 MILLIGRAM PER MILLILITRE NEBULIZER
  2. FLUTICASONE. [Concomitant]
     Active Substance: FLUTICASONE
     Dosage: 50MCG ;1 SPRAY ONCE DAILY
  3. PANCRELIPASE. [Concomitant]
     Active Substance: PANCRELIPASE
     Dosage: 3CAPSULES ;ORAL;BEFORE MEALS
     Route: 048
  4. ASCORBIC ACID. [Concomitant]
     Active Substance: ASCORBIC ACID
     Dosage: 250 MG BY MOUTH ONCE DAILY
  5. OMEPRAZOLE. [Concomitant]
     Active Substance: OMEPRAZOLE
     Dosage: 20 MG ;1 CAPSULE ORAL ;BID
     Route: 048
  6. TRIKAFTA [Suspect]
     Active Substance: ELEXACAFTOR\IVACAFTOR\TEZACAFTOR
     Indication: CYSTIC FIBROSIS
     Dosage: 100MG ELEXACAFTOR, 50MG TEZACAFTOR, 75MG IVACAFTOR)AM;(150MG IVACAFTOR)PM BID
     Route: 048
     Dates: start: 20191121
  7. HYPERSAL [Concomitant]
     Active Substance: SODIUM CHLORIDE
     Dosage: 4 ML NEBULIZER;ONCE DAILY
  8. ALBUTEROL HFA [Concomitant]
     Active Substance: ALBUTEROL SULFATE
     Dosage: 90 MCG INHALE PUFFS BY MOTH EVERY 4 HRS
  9. SOURCECF PEDIATRIC [Concomitant]
     Active Substance: VITAMINS
     Dosage: 1 TAB, BID
     Route: 048

REACTIONS (1)
  - Insomnia [Not Recovered/Not Resolved]
